FAERS Safety Report 16887630 (Version 1)
Quarter: 2019Q4

REPORT INFORMATION
  Report Type: Spontaneous
  Country: DE (occurrence: DE)
  Receive Date: 20191005
  Receipt Date: 20191005
  Transmission Date: 20200122
  Serious: Yes (Congenital Anomaly)
  Sender: FDA-Public Use
  Company Number: DE-SUN PHARMACEUTICAL INDUSTRIES LTD-2019RR-222368

PATIENT
  Age: 1 Day
  Sex: Male
  Weight: 3.79 kg

DRUGS (2)
  1. SERTRALINE [Suspect]
     Active Substance: SERTRALINE HYDROCHLORIDE
     Indication: DEPRESSION
     Dosage: 100 [MG/D (2X50) ] 2 SEPARATED DOSES
     Route: 064
     Dates: start: 20180415, end: 20190122
  2. OPIPRAMOL [Concomitant]
     Active Substance: OPIPRAMOL
     Indication: ANXIETY DISORDER
     Dosage: 150 [MG/D (BIS 50) ] ()
     Route: 064
     Dates: start: 20180415, end: 20180515

REACTIONS (1)
  - Talipes [Unknown]

NARRATIVE: CASE EVENT DATE: 20190122
